FAERS Safety Report 5050690-8 (Version None)
Quarter: 2006Q3

REPORT INFORMATION
  Report Type: 
  Country: None (occurrence: None)
  Receive Date: 20060710
  Receipt Date: 20060517
  Transmission Date: 20061208
  Serious: Yes (Hospitalization)
  Sender: FDA-Public Use
  Company Number: 2006081775

PATIENT
  Age: 73 Year
  Sex: Male
  Weight: 76 kg

DRUGS (1)
  1. SUTENT [Suspect]
     Indication: METASTATIC RENAL CELL CARCINOMA
     Dosage: 50 MG (50 MG, OD - INTERVAL:  4W/2W), ORAL
     Route: 048
     Dates: start: 20060505, end: 20060517

REACTIONS (5)
  - CHEST PAIN [None]
  - INCREASED VISCOSITY OF BRONCHIAL SECRETION [None]
  - NAUSEA [None]
  - VOMITING [None]
  - YELLOW SKIN [None]
